FAERS Safety Report 12529139 (Version 1)
Quarter: 2016Q3

REPORT INFORMATION
  Report Type: Spontaneous
  Country: US (occurrence: US)
  Receive Date: 20160705
  Receipt Date: 20160705
  Transmission Date: 20161109
  Serious: No
  Sender: FDA-Public Use
  Company Number: US-ELI_LILLY_AND_COMPANY-US201607000298

PATIENT
  Age: 77 Year
  Sex: Male

DRUGS (4)
  1. JANUVIA [Concomitant]
     Active Substance: SITAGLIPTIN PHOSPHATE
  2. HUMALOG MIX75/25 [Suspect]
     Active Substance: INSULIN LISPRO
     Indication: PRODUCT USED FOR UNKNOWN INDICATION
     Dosage: UNK, UNKNOWN
     Route: 065
  3. HUMALOG MIX75/25 [Suspect]
     Active Substance: INSULIN LISPRO
     Dosage: UNK, UNKNOWN
     Route: 065
  4. GLIMEPIRIDE. [Concomitant]
     Active Substance: GLIMEPIRIDE

REACTIONS (2)
  - Drug dose omission [Unknown]
  - Visual impairment [Unknown]
